FAERS Safety Report 6902805-1 (Version None)
Quarter: 2010Q3

REPORT INFORMATION
  Report Type: 
  Country: None (occurrence: None)
  Receive Date: 20100803
  Receipt Date: 20080812
  Transmission Date: 20110219
  Serious: No
  Sender: FDA-Public Use
  Company Number: US-PFIZER INC-2008067931

PATIENT
  Age: 37 Year
  Sex: Male

DRUGS (2)
  1. LYRICA [Suspect]
     Indication: RADICULAR PAIN
  2. ALL OTHER THERAPEUTIC PRODUCTS [Concomitant]

REACTIONS (1)
  - OEDEMA PERIPHERAL [None]
